FAERS Safety Report 11279686 (Version 2)
Quarter: 2017Q4

REPORT INFORMATION
  Report Type: Spontaneous
  Country: JP (occurrence: JP)
  Receive Date: 20150717
  Receipt Date: 20171009
  Transmission Date: 20180320
  Serious: Yes (Hospitalization, Other)
  Sender: FDA-Public Use
  Company Number: JP-BAXALTA-2015BAX027918

PATIENT
  Age: 30 Year
  Sex: Male

DRUGS (3)
  1. ADVATE [Suspect]
     Active Substance: ANTIHEMOPHILIC FACTOR, HUMAN RECOMBINANT
     Dosage: UNK
     Route: 042
     Dates: start: 20140320
  2. ADVATE [Suspect]
     Active Substance: ANTIHEMOPHILIC FACTOR, HUMAN RECOMBINANT
     Dosage: 1000 INTERNATIONAL UNITS, UNK
     Route: 042
  3. ADVATE [Suspect]
     Active Substance: ANTIHEMOPHILIC FACTOR, HUMAN RECOMBINANT
     Indication: FACTOR VIII DEFICIENCY
     Dosage: 4000IU (INTERNATIONAL UNIT)1X A DAY
     Route: 042
     Dates: start: 201401

REACTIONS (6)
  - Haemorrhage [Recovering/Resolving]
  - Factor VIII inhibition [Recovered/Resolved]
  - Contusion [Unknown]
  - Fall [Unknown]
  - Peripheral swelling [Unknown]
  - Factor VIII inhibition [Recovering/Resolving]

NARRATIVE: CASE EVENT DATE: 20140310
